FAERS Safety Report 20457107 (Version 1)
Quarter: 2022Q1

REPORT INFORMATION
  Report Type: Spontaneous
  Country: US (occurrence: US)
  Receive Date: 20220210
  Receipt Date: 20220210
  Transmission Date: 20220423
  Serious: No
  Sender: FDA-Public Use
  Company Number: US-PERRIGO-21US011192

PATIENT
  Age: 66 Year
  Sex: Male
  Weight: 77.098 kg

DRUGS (6)
  1. CETIRIZINE HYDROCHLORIDE [Suspect]
     Active Substance: CETIRIZINE HYDROCHLORIDE
     Indication: Rash
     Dosage: 20 MG, QD
     Route: 048
     Dates: end: 20210809
  2. CETIRIZINE HYDROCHLORIDE [Suspect]
     Active Substance: CETIRIZINE HYDROCHLORIDE
     Dosage: 10 MG, QD
     Route: 048
     Dates: start: 20210810
  3. AMLODIPINE [Concomitant]
     Active Substance: AMLODIPINE BESYLATE
     Indication: Hypertension
     Dosage: 10 MG, UNKNOWN
     Route: 065
  4. FLEXERIL                           /00428402/ [Concomitant]
     Indication: Pain
     Dosage: 5 MG, UNKNOWN
     Route: 065
  5. NALTREXONE [Concomitant]
     Active Substance: NALTREXONE
     Indication: Neuralgia
     Dosage: 3 MG, UNKNOWN
     Route: 065
  6. VITAMINS [Concomitant]
     Active Substance: VITAMINS
     Indication: Supplementation therapy
     Dosage: UNKNOWN, UNKNOWN
     Route: 065

REACTIONS (3)
  - Prostatomegaly [Not Recovered/Not Resolved]
  - Off label use [Unknown]
  - Product administered to patient of inappropriate age [Unknown]

NARRATIVE: CASE EVENT DATE: 20200417
